FAERS Safety Report 14871831 (Version 1)
Quarter: 2018Q2

REPORT INFORMATION
  Report Type: Report from Study
  Country: None (occurrence: US)
  Receive Date: 20180509
  Receipt Date: 20180509
  Transmission Date: 20180711
  Serious: Yes (Other)
  Sender: FDA-Public Use
  Company Number: US-BAUSCH-BL-2018-013415

PATIENT
  Sex: Female

DRUGS (4)
  1. SYPRINE [Suspect]
     Active Substance: TRIENTINE HYDROCHLORIDE
     Indication: PRODUCT USED FOR UNKNOWN INDICATION
     Dosage: PROBABLY IN 1989 OR 1990?250X 2= 500 MG BID
     Route: 065
  2. FLUTICASONE PROPIONATE. [Suspect]
     Active Substance: FLUTICASONE PROPIONATE
     Indication: PRODUCT USED FOR UNKNOWN INDICATION
     Dosage: 50 UG/.1G, 1 BOTTLE FOR 30 DAYS, 1-2 SPRAY IN EACH NOSTRIL, AFTER SALINE
     Route: 045
  3. METRONIDAZOLE. [Suspect]
     Active Substance: METRONIDAZOLE
     Indication: PRODUCT USED FOR UNKNOWN INDICATION
     Dosage: 500 MG/1, 14 TABLETS FOR 7 DAYS/1 TWICE  DAILY FOR 7 DAYS
     Route: 065
  4. ZINC. [Suspect]
     Active Substance: ZINC
     Indication: PRODUCT USED FOR UNKNOWN INDICATION
     Route: 065

REACTIONS (5)
  - Colitis ulcerative [Unknown]
  - Hepato-lenticular degeneration [Unknown]
  - Migraine [Unknown]
  - Depression [Unknown]
  - Tremor [Unknown]

NARRATIVE: CASE EVENT DATE: 1995
